FAERS Safety Report 6654588-0 (Version None)
Quarter: 2010Q1

REPORT INFORMATION
  Report Type: 
  Country: None (occurrence: None)
  Receive Date: 20100326
  Receipt Date: 20100316
  Transmission Date: 20100710
  Serious: Yes (Other)
  Sender: FDA-Public Use
  Company Number: US-PFIZER INC-2010034559

PATIENT
  Sex: Female
  Weight: 108.84 kg

DRUGS (6)
  1. RELPAX [Suspect]
     Indication: MIGRAINE
     Dosage: 40 MG, AS NEEDED
     Route: 048
     Dates: start: 20050101
  2. HYDROCHLOROTHIAZIDE [Concomitant]
     Dosage: 12.5 MG, DAILY
  3. LORATADINE [Concomitant]
     Indication: HYPERSENSITIVITY
     Dosage: 100 MG, DAILY
  4. MINOCYCLINE [Concomitant]
     Indication: ILL-DEFINED DISORDER
     Dosage: 100 MG, 2X/DAY
  5. OXYBUTYNIN [Concomitant]
     Indication: BLADDER DISORDER
     Dosage: 5 MG, 2X/DAY
  6. MONTELUKAST [Concomitant]
     Dosage: 10 MG, DAILY

REACTIONS (8)
  - ACCIDENT [None]
  - ANKLE FRACTURE [None]
  - DEPRESSION [None]
  - DYSPEPSIA [None]
  - FIBULA FRACTURE [None]
  - LOWER LIMB FRACTURE [None]
  - TIBIA FRACTURE [None]
  - WEIGHT INCREASED [None]
